FAERS Safety Report 4585404-9 (Version None)
Quarter: 2005Q1

REPORT INFORMATION
  Report Type: 
  Country: None (occurrence: None)
  Receive Date: 20050217
  Receipt Date: 20050114
  Transmission Date: 20050727
  Serious: Yes (Other)
  Sender: FDA-Public Use
  Company Number: SE-NOVOPROD-241679

PATIENT
  Sex: Female

DRUGS (1)
  1. VAGIFEM [Suspect]
     Route: 063

REACTIONS (1)
  - HYPERTROPHY BREAST [None]
